FAERS Safety Report 24003627 (Version 2)
Quarter: 2024Q3

REPORT INFORMATION
  Report Type: Spontaneous
  Country: ES (occurrence: ES)
  Receive Date: 20240624
  Receipt Date: 20240716
  Transmission Date: 20241016
  Serious: Yes (Other)
  Sender: BIOVITRUM
  Company Number: ES-BIOVITRUM-2024-ES-005827

PATIENT
  Age: 63 Year
  Sex: Female

DRUGS (10)
  1. KINERET [Suspect]
     Active Substance: ANAKINRA
     Indication: Pericarditis
     Dosage: HAD BEEN ON TREATMENT WITH DAILY INJECTIONS FOR THREE MONTHS
     Dates: start: 202309, end: 20231103
  2. KINERET [Suspect]
     Active Substance: ANAKINRA
     Dosage: 1 DOSE EVERY 72 HOURS
     Dates: start: 20231217, end: 20240307
  3. KINERET [Suspect]
     Active Substance: ANAKINRA
     Dosage: CURRENTLY SHE HAD STARTED INJECTING KINERET EVERY 5 DAYS
     Dates: start: 202405
  4. KINERET [Suspect]
     Active Substance: ANAKINRA
     Dosage: ONE INJECTION EVERY 4 DAYS
     Dates: start: 20240310, end: 20240617
  5. KINERET [Suspect]
     Active Substance: ANAKINRA
     Dosage: ONE INJECTION EVERY 48 HOURS
     Dates: start: 20231103, end: 20231210
  6. KINERET [Suspect]
     Active Substance: ANAKINRA
     Dosage: ONE INJECTION PER WEEK
     Dates: start: 20240620
  7. FLUOXETINE [Concomitant]
     Active Substance: FLUOXETINE HYDROCHLORIDE
     Indication: Product used for unknown indication
     Dates: start: 2020
  8. LORMETAZEPAM [Concomitant]
     Active Substance: LORMETAZEPAM
     Indication: Product used for unknown indication
     Dates: start: 2020
  9. HYDROCHLOROTHIAZIDE\VALSARTAN [Concomitant]
     Active Substance: HYDROCHLOROTHIAZIDE\VALSARTAN
     Indication: Product used for unknown indication
     Route: 048
     Dates: start: 2020
  10. CRESTOR [Concomitant]
     Active Substance: ROSUVASTATIN CALCIUM
     Indication: Product used for unknown indication
     Route: 048
     Dates: start: 2020

REACTIONS (3)
  - Osteonecrosis of jaw [Recovering/Resolving]
  - Intentional product misuse [Unknown]
  - Mucosal inflammation [Recovering/Resolving]

NARRATIVE: CASE EVENT DATE: 20230901
